FAERS Safety Report 8182204-8 (Version None)
Quarter: 2012Q1

REPORT INFORMATION
  Report Type: 
  Country: None (occurrence: None)
  Receive Date: 20120302
  Receipt Date: 20120222
  Transmission Date: 20120608
  Serious: Yes (Hospitalization, Other)
  Sender: FDA-Public Use
  Company Number: FR-ASTRAZENECA-2011SE33955

PATIENT
  Age: 49 Year
  Sex: Female

DRUGS (2)
  1. XYLOCAINE [Suspect]
     Indication: NEURALGIA
     Dosage: 10 MG/ML
     Route: 042
     Dates: start: 20080528, end: 20080530
  2. KETAMINE HCL [Suspect]
     Indication: NEURALGIA
     Route: 042
     Dates: start: 20080528, end: 20080530

REACTIONS (28)
  - HALLUCINATION, AUDITORY [None]
  - EYE PAIN [None]
  - TINNITUS [None]
  - VISUAL IMPAIRMENT [None]
  - PALLOR [None]
  - MONOPLEGIA [None]
  - ACCIDENTAL OVERDOSE [None]
  - CHEST PAIN [None]
  - PANIC REACTION [None]
  - CONVULSION [None]
  - HALLUCINATION [None]
  - ANAESTHESIA [None]
  - LEUKOENCEPHALOPATHY [None]
  - NAUSEA [None]
  - INJECTION SITE PAIN [None]
  - MALAISE [None]
  - INCORRECT ROUTE OF DRUG ADMINISTRATION [None]
  - SMOKE SENSITIVITY [None]
  - TACHYCARDIA [None]
  - CLONUS [None]
  - TREMOR [None]
  - DRY EYE [None]
  - VENOUS OCCLUSION [None]
  - TOXICITY TO VARIOUS AGENTS [None]
  - HEADACHE [None]
  - EPILEPSY [None]
  - LOSS OF CONSCIOUSNESS [None]
  - HYPERACUSIS [None]
